FAERS Safety Report 10584787 (Version 1)
Quarter: 2014Q4

REPORT INFORMATION
  Report Type: Report from Study
  Country: CA (occurrence: CA)
  Receive Date: 20141114
  Receipt Date: 20141114
  Transmission Date: 20150529
  Serious: Yes (Hospitalization)
  Sender: FDA-Public Use
  Company Number: CA-JNJFOC-20141106411

PATIENT
  Age: 29 Year
  Sex: Male
  Weight: 64.4 kg

DRUGS (1)
  1. REMICADE [Suspect]
     Active Substance: INFLIXIMAB
     Indication: PRODUCT USED FOR UNKNOWN INDICATION
     Route: 042
     Dates: start: 20140722, end: 20141002

REACTIONS (2)
  - Cytomegalovirus infection [Unknown]
  - Ulcer [Unknown]

NARRATIVE: CASE EVENT DATE: 20141031
